FAERS Safety Report 24291439 (Version 1)
Quarter: 2024Q3

REPORT INFORMATION
  Report Type: Spontaneous
  Country: US (occurrence: None)
  Receive Date: 20240906
  Receipt Date: 20240906
  Transmission Date: 20241017
  Serious: No
  Sender: DOMPE FARMACEUTICI
  Company Number: US-FARMAPROD-202308-202308-2569

PATIENT
  Age: 56 Year
  Sex: Female

DRUGS (14)
  1. OXERVATE [Suspect]
     Active Substance: CENEGERMIN-BKBJ
     Indication: Neurotrophic keratopathy
     Route: 047
     Dates: start: 20230823
  2. OXERVATE [Suspect]
     Active Substance: CENEGERMIN-BKBJ
     Indication: Hypoaesthesia eye
  3. FISH OIL-OMEGA-3-VIT D [Concomitant]
  4. KRILL OIL [Concomitant]
     Active Substance: DIETARY SUPPLEMENT\KRILL OIL
     Dosage: 1000-170MG
  5. DIETARY SUPPLEMENT [Concomitant]
     Active Substance: DIETARY SUPPLEMENT
     Dosage: 1 G-10 MG
  6. REFRESH RELIEVA PF [Concomitant]
     Active Substance: CARBOXYMETHYLCELLULOSE SODIUM\GLYCERIN
     Dosage: 0.5%-0.9%
  7. REFRESH OPTIVE [Concomitant]
     Active Substance: CARBOXYMETHYLCELLULOSE SODIUM\GLYCERIN
     Dosage: 1 %-0.9 % DROPS GEL
  8. GABAPENTIN [Concomitant]
     Active Substance: GABAPENTIN
  9. LEVOTHYROXINE SODIUM [Concomitant]
     Active Substance: LEVOTHYROXINE SODIUM
  10. LEFLUNOMIDE [Concomitant]
     Active Substance: LEFLUNOMIDE
  11. MELOXICAM [Concomitant]
     Active Substance: MELOXICAM
  12. PREDNISONE [Concomitant]
     Active Substance: PREDNISONE
  13. PLAQUENIL [Concomitant]
     Active Substance: HYDROXYCHLOROQUINE SULFATE
  14. ORENCIA [Concomitant]
     Active Substance: ABATACEPT
     Dosage: CLICKJECT; AUTOMATIC INJECTOR.

REACTIONS (1)
  - Eye pain [Unknown]

NARRATIVE: CASE EVENT DATE: 20230823
